FAERS Safety Report 17031942 (Version 2)
Quarter: 2019Q4

REPORT INFORMATION
  Report Type: Spontaneous
  Country: US (occurrence: US)
  Receive Date: 20191114
  Receipt Date: 20191203
  Transmission Date: 20200122
  Serious: No
  Sender: FDA-Public Use
  Company Number: US-ACTELION-A-NJ2019-197781

PATIENT
  Age: 58 Year
  Sex: Male

DRUGS (1)
  1. OPSUMIT [Suspect]
     Active Substance: MACITENTAN
     Indication: PULMONARY ARTERIAL HYPERTENSION
     Dosage: 10 MG, QD
     Route: 048
     Dates: start: 20190815

REACTIONS (3)
  - Catheter site haemorrhage [Unknown]
  - Device dislocation [Unknown]
  - Nausea [Unknown]

NARRATIVE: CASE EVENT DATE: 20191026
